FAERS Safety Report 21500245 (Version 2)
Quarter: 2022Q4

REPORT INFORMATION
  Report Type: Spontaneous
  Country: JP (occurrence: JP)
  Receive Date: 20221024
  Receipt Date: 20221107
  Transmission Date: 20230113
  Serious: Yes (Hospitalization, Other)
  Sender: FDA-Public Use
  Company Number: JP-CHUGAI-2022039529

PATIENT
  Age: 75 Year
  Sex: Female

DRUGS (2)
  1. TECENTRIQ [Suspect]
     Active Substance: ATEZOLIZUMAB
     Indication: Hepatocellular carcinoma
     Dosage: 1200 MILLIGRAM, SINGLE
     Route: 041
     Dates: start: 20220922
  2. AVASTIN [Suspect]
     Active Substance: BEVACIZUMAB
     Indication: Hepatocellular carcinoma
     Dosage: 15 MILLIGRAM, SINGLE
     Route: 041
     Dates: start: 20220922

REACTIONS (7)
  - Pyrexia [Recovering/Resolving]
  - Cytopenia [Unknown]
  - Inappropriate antidiuretic hormone secretion [Unknown]
  - Liver disorder [Unknown]
  - Encephalitis [Recovered/Resolved]
  - Meningitis [Recovered/Resolved]
  - Guillain-Barre syndrome [Unknown]

NARRATIVE: CASE EVENT DATE: 20220923
